FAERS Safety Report 9012267 (Version 1)
Quarter: 2013Q1

REPORT INFORMATION
  Report Type: Spontaneous
  Country: US (occurrence: None)
  Receive Date: 20121231
  Receipt Date: 20121231
  Transmission Date: 20140127
  Serious: Yes (Hospitalization, Other)
  Sender: FDA-Public Use
  Company Number: 2012AP004347

PATIENT
  Age: 77 Year
  Sex: Male

DRUGS (3)
  1. CLOPIDOGREL [Suspect]
     Indication: PRODUCT USED FOR UNKNOWN INDICATION
     Dates: start: 201209
  2. WARFARIN (WARFARIN) [Suspect]
     Indication: PULMONARY EMBOLISM
  3. ASAPHEN [Suspect]
     Indication: PRODUCT USED FOR UNKNOWN INDICATION

REACTIONS (3)
  - Angina pectoris [None]
  - Cerebral haemorrhage [None]
  - Dizziness [None]
